FAERS Safety Report 8868140 (Version 1)
Quarter: 2012Q4

REPORT INFORMATION
  Report Type: 
  Country: BR (occurrence: BR)
  Receive Date: 20121026
  Receipt Date: 20121026
  Transmission Date: 20130627
  Serious: Yes (Hospitalization)
  Sender: FDA-Public Use
  Company Number: BR-ASTRAZENECA-2008UW01358

PATIENT
  Age: 75 Year
  Sex: Male
  Weight: 100 kg

DRUGS (13)
  1. ATENOLOL [Suspect]
     Indication: HYPERTENSION
     Route: 048
     Dates: start: 2005
  2. LOSEC [Suspect]
     Indication: GASTRITIS
     Route: 048
     Dates: start: 1995
  3. LOSEC [Suspect]
     Indication: GASTRITIS PROPHYLAXIS
     Route: 048
     Dates: start: 1995
  4. LOSEC [Suspect]
     Indication: GASTRIC ULCER
     Route: 048
     Dates: start: 1995
  5. LOSEC [Suspect]
     Indication: GASTRITIS
     Route: 048
     Dates: start: 1997
  6. LOSEC [Suspect]
     Indication: GASTRITIS PROPHYLAXIS
     Route: 048
     Dates: start: 1997
  7. LOSEC [Suspect]
     Indication: GASTRIC ULCER
     Route: 048
     Dates: start: 1997
  8. TECTA [Suspect]
     Indication: ABDOMINAL PAIN UPPER
     Route: 065
  9. AAS [Concomitant]
     Indication: ANTICOAGULANT THERAPY
     Dosage: Two times a day, more than 20 years
     Route: 048
  10. SUSTRATE [Concomitant]
     Indication: VASODILATION PROCEDURE
     Dosage: Three times a day, more than 20 years
     Route: 048
  11. OLCADIL [Concomitant]
     Indication: SEDATIVE THERAPY
     Dosage: Every day
     Route: 048
     Dates: start: 2006
  12. CAPOTEN [Concomitant]
     Indication: HYPERTENSION
     Dosage: Two times a day
     Route: 048
     Dates: start: 1998
  13. 13 UNSPECIFIED MEDICATION [Concomitant]
     Indication: CARDIAC DISORDER

REACTIONS (13)
  - Venous occlusion [Recovered/Resolved]
  - Neuralgia [Not Recovered/Not Resolved]
  - Arthritis [Not Recovered/Not Resolved]
  - Osteoarthritis [Not Recovered/Not Resolved]
  - Arthralgia [Not Recovered/Not Resolved]
  - Nasopharyngitis [Not Recovered/Not Resolved]
  - Foaming at mouth [Not Recovered/Not Resolved]
  - Hepatic steatosis [Not Recovered/Not Resolved]
  - Gastrointestinal pain [Recovered/Resolved]
  - Amylase abnormal [Not Recovered/Not Resolved]
  - Polyneuropathy [Unknown]
  - Myalgia [Not Recovered/Not Resolved]
  - Dry mouth [Not Recovered/Not Resolved]
